FAERS Safety Report 6212021-7 (Version None)
Quarter: 2009Q2

REPORT INFORMATION
  Report Type: 
  Country: None (occurrence: None)
  Receive Date: 20090529
  Receipt Date: 20090519
  Transmission Date: 20091009
  Serious: Yes (Death)
  Sender: FDA-Public Use
  Company Number: SPV1-2009-00953

PATIENT

DRUGS (1)
  1. FOSRENOL [Suspect]

REACTIONS (2)
  - INVESTIGATION ABNORMAL [None]
  - LYMPHADENOPATHY [None]
